FAERS Safety Report 9154656 (Version 1)
Quarter: 2013Q1

REPORT INFORMATION
  Report Type: Spontaneous
  Country: US (occurrence: US)
  Receive Date: 20130311
  Receipt Date: 20130311
  Transmission Date: 20140127
  Serious: No
  Sender: FDA-Public Use
  Company Number: US-ABBOTT-12P-163-0929287-00

PATIENT
  Age: 49 Year
  Sex: Female
  Weight: 56.3 kg

DRUGS (3)
  1. LUPRON DEPOT 11.25 MG [Suspect]
     Indication: VAGINAL HAEMORRHAGE
     Dates: start: 201203
  2. NORETHINDRONE [Concomitant]
     Indication: PRODUCT USED FOR UNKNOWN INDICATION
     Route: 050
     Dates: start: 201203
  3. UNKNOWN MEDICATION [Concomitant]
     Indication: BLOOD PRESSURE

REACTIONS (1)
  - Vaginal haemorrhage [Not Recovered/Not Resolved]
